FAERS Safety Report 11913159 (Version 1)
Quarter: 2016Q1

REPORT INFORMATION
  Report Type: Spontaneous
  Country: US (occurrence: None)
  Receive Date: 20160112
  Receipt Date: 20160112
  Transmission Date: 20160526
  Serious: No
  Sender: FDA-Public Use
  Company Number: None

PATIENT
  Age: 68 Year
  Sex: Female

DRUGS (9)
  1. STOOL SOFTNR [Concomitant]
  2. FUROSEMIDE. [Concomitant]
     Active Substance: FUROSEMIDE
  3. MELATONIN [Concomitant]
     Active Substance: MELATONIN
  4. POT CITRATE [Concomitant]
     Active Substance: POTASSIUM CITRATE
  5. VITAMIN D [Concomitant]
     Active Substance: CHOLECALCIFEROL
  6. SUTENT [Suspect]
     Active Substance: SUNITINIB MALATE
     Indication: CARCINOID TUMOUR
     Dosage: 37.5 MG QD FOR 14DS OFF 7 ORAL
     Route: 048
     Dates: start: 20151009, end: 201512
  7. ONDANSETRON [Concomitant]
     Active Substance: ONDANSETRON
  8. NYSTATIN. [Concomitant]
     Active Substance: NYSTATIN
  9. HYDROCO/APAP [Concomitant]
     Active Substance: ACETAMINOPHEN\HYDROCODONE

REACTIONS (8)
  - Organ failure [None]
  - Malaise [None]
  - Malignant neoplasm progression [None]
  - Asthenia [None]
  - Oedema [None]
  - Nausea [None]
  - Eating disorder [None]
  - Activities of daily living impaired [None]

NARRATIVE: CASE EVENT DATE: 201512
